FAERS Safety Report 8902030 (Version 3)
Quarter: 2014Q1

REPORT INFORMATION
  Report Type: Spontaneous
  Country: AU (occurrence: AU)
  Receive Date: 20121112
  Receipt Date: 20140227
  Transmission Date: 20141002
  Serious: Yes (Hospitalization, Other)
  Sender: FDA-Public Use
  Company Number: PHHY2012AU102940

PATIENT
  Sex: Female

DRUGS (3)
  1. GILENYA [Suspect]
     Dosage: UNK
     Route: 048
     Dates: start: 20121102, end: 20121108
  2. GILENYA [Suspect]
     Dosage: UNK
  3. VARICELLA VIRUS VACCINE (NON-GSK) [Suspect]

REACTIONS (10)
  - Meningitis viral [Unknown]
  - Meningism [Unknown]
  - Pyrexia [Recovered/Resolved]
  - Eye pain [Unknown]
  - Malaise [Unknown]
  - Rash [Recovered/Resolved]
  - Lymphocyte count decreased [Unknown]
  - Neutropenia [Unknown]
  - Pancytopenia [Recovered/Resolved]
  - Vaccination error [Unknown]
